FAERS Safety Report 16486427 (Version 1)
Quarter: 2019Q2

REPORT INFORMATION
  Report Type: Spontaneous
  Country: US (occurrence: US)
  Receive Date: 20190627
  Receipt Date: 20190627
  Transmission Date: 20190711
  Serious: Yes (Hospitalization)
  Sender: FDA-Public Use
  Company Number: US-NAPPMUNDI-USA-2019-0147587

PATIENT
  Age: 59 Year
  Sex: Female

DRUGS (1)
  1. DILAUDID [Suspect]
     Active Substance: HYDROMORPHONE HYDROCHLORIDE
     Indication: PRODUCT USED FOR UNKNOWN INDICATION
     Dosage: UNK
     Route: 048

REACTIONS (11)
  - Intestinal obstruction [Unknown]
  - Volvulus [Unknown]
  - Nausea [Unknown]
  - Abdominal discomfort [Unknown]
  - Depression [Unknown]
  - Pain [Unknown]
  - Sleep disorder [Unknown]
  - Paranoia [Unknown]
  - Anxiety [Unknown]
  - Mood altered [Recovering/Resolving]
  - Diarrhoea [Unknown]

NARRATIVE: CASE EVENT DATE: 2018
